FAERS Safety Report 11286071 (Version 2)
Quarter: 2015Q3

REPORT INFORMATION
  Report Type: Spontaneous
  Country: US (occurrence: US)
  Receive Date: 20150721
  Receipt Date: 20150721
  Transmission Date: 20151125
  Serious: No
  Sender: FDA-Public Use
  Company Number: US-UNITED THERAPEUTICS-UNT-2014-010693

PATIENT
  Sex: Female
  Weight: 73.47 kg

DRUGS (8)
  1. ORENITRAM [Suspect]
     Active Substance: TREPROSTINIL
     Indication: PULMONARY HYPERTENSION
     Dosage: 0.25 MG,  Q AM + PM
     Route: 048
     Dates: start: 20141107
  2. ORENITRAM [Suspect]
     Active Substance: TREPROSTINIL
     Dosage: 0.25 MG, TID
     Route: 048
     Dates: start: 20141020
  3. REVATIO [Concomitant]
     Active Substance: SILDENAFIL CITRATE
     Indication: PRODUCT USED FOR UNKNOWN INDICATION
  4. ORENITRAM [Suspect]
     Active Substance: TREPROSTINIL
     Dosage: 0.125 MG, Q8H
     Route: 048
     Dates: start: 20141119
  5. ORENITRAM [Suspect]
     Active Substance: TREPROSTINIL
     Dosage: 0.25 MG, Q8H
     Route: 048
     Dates: start: 20141107
  6. ORENITRAM [Suspect]
     Active Substance: TREPROSTINIL
     Dosage: 0.375 MG, MIDDAY
     Route: 048
  7. ORENITRAM [Suspect]
     Active Substance: TREPROSTINIL
     Dosage: 0.125 MG, Q8H
     Route: 048
     Dates: start: 20141107
  8. ORENITRAM [Suspect]
     Active Substance: TREPROSTINIL
     Dosage: 0.125 MG, Q8H
     Route: 048
     Dates: start: 20141020

REACTIONS (13)
  - Drug intolerance [Unknown]
  - Pain [Recovering/Resolving]
  - Limb discomfort [Unknown]
  - Abdominal pain [Unknown]
  - Fatigue [Unknown]
  - Paraesthesia [Unknown]
  - Abdominal distension [Unknown]
  - Muscle spasms [Unknown]
  - Malaise [Unknown]
  - Headache [Recovering/Resolving]
  - Diarrhoea [Unknown]
  - Feeling hot [Unknown]
  - Arthralgia [Unknown]

NARRATIVE: CASE EVENT DATE: 2014
